FAERS Safety Report 22222447 (Version 1)
Quarter: 2023Q2

REPORT INFORMATION
  Report Type: Spontaneous
  Country: US (occurrence: None)
  Receive Date: 20230417
  Receipt Date: 20230417
  Transmission Date: 20230721
  Serious: No
  Sender: FDA-Public Use
  Company Number: None

PATIENT
  Age: 59 Year
  Sex: Female
  Weight: 153 kg

DRUGS (7)
  1. PAXLOVID [Suspect]
     Active Substance: NIRMATRELVIR\RITONAVIR
     Indication: COVID-19
     Dosage: OTHER QUANTITY : 3 TABLET(S);?FREQUENCY : TWICE A DAY;?
     Route: 048
     Dates: start: 20230414, end: 20230415
  2. ATORVASTATIN [Concomitant]
     Active Substance: ATORVASTATIN
  3. GLYBURIDE\METFORMIN [Concomitant]
     Active Substance: GLYBURIDE\METFORMIN
  4. ROPINIROLE [Concomitant]
     Active Substance: ROPINIROLE
  5. TIZANIDINE [Concomitant]
     Active Substance: TIZANIDINE
  6. VITAMIN D [Concomitant]
     Active Substance: VITAMIN D NOS
  7. BIOTIN [Concomitant]
     Active Substance: BIOTIN

REACTIONS (2)
  - Gastrooesophageal reflux disease [None]
  - Dysgeusia [None]

NARRATIVE: CASE EVENT DATE: 20230415
